FAERS Safety Report 5761394-8 (Version None)
Quarter: 2008Q2

REPORT INFORMATION
  Report Type: 
  Country: None (occurrence: None)
  Receive Date: 20080606
  Receipt Date: 20080529
  Transmission Date: 20081010
  Serious: Yes (Hospitalization)
  Sender: FDA-Public Use
  Company Number: US-SANOFI-SYNTHELABO-A03200802065

PATIENT
  Sex: Male
  Weight: 97.1 kg

DRUGS (3)
  1. THYROID TAB [Concomitant]
     Dosage: UNK
     Route: 048
     Dates: start: 20070101, end: 20070101
  2. UROXATRAL [Suspect]
     Indication: PROSTATOMEGALY
     Route: 048
     Dates: end: 20080527
  3. ATENOLOL [Suspect]
     Dosage: UNK
     Route: 048
     Dates: start: 20070501, end: 20071001

REACTIONS (9)
  - ABDOMINAL PAIN [None]
  - ASTHENIA [None]
  - ATRIAL FIBRILLATION [None]
  - DIZZINESS [None]
  - FATIGUE [None]
  - HEART RATE IRREGULAR [None]
  - HYPOTENSION [None]
  - MYALGIA [None]
  - PAIN [None]
